FAERS Safety Report 6831515-4 (Version None)
Quarter: 2010Q3

REPORT INFORMATION
  Report Type: 
  Country: None (occurrence: None)
  Receive Date: 20100712
  Receipt Date: 20100628
  Transmission Date: 20110219
  Serious: Yes (Other)
  Sender: FDA-Public Use
  Company Number: PHEH2008US01021

PATIENT
  Sex: Female
  Weight: 99.592 kg

DRUGS (60)
  1. ELIDEL [Suspect]
     Indication: ECZEMA
     Route: 061
     Dates: start: 20020101
  2. PROTOPIC [Concomitant]
     Dosage: UNK
  3. PREVACID [Concomitant]
  4. HYDROCORTISONE [Concomitant]
  5. ALPRAZOLAM [Concomitant]
  6. DERMA-SMOOTHE/FS [Concomitant]
  7. CONDYLOX [Concomitant]
  8. URECREM [Concomitant]
  9. INTERFERON ALFA [Concomitant]
     Dosage: 5 MILLION UNITS 3 TIMES DAILY
  10. CLARITIN [Concomitant]
     Dosage: UNK
  11. ATARAX [Concomitant]
     Dosage: UNK
  12. LIDEX [Concomitant]
     Dosage: TO SCLAP AS NEEDED
  13. ALLEGRA [Concomitant]
     Dosage: 2 TIMES DAILY
  14. HYDRO-AQUIL [Concomitant]
     Dosage: 2.5%
  15. HYDROXYZINE ^NOVO^ [Concomitant]
  16. CITALOPRAM HYDROBROMIDE [Concomitant]
     Dosage: UNK
  17. PREDNISONE [Concomitant]
     Dosage: UNK
  18. LO/OVRAL [Concomitant]
     Dosage: UNK
  19. STEROIDS NOS [Concomitant]
     Dosage: UNK
  20. KEFLEX [Concomitant]
     Dosage: UNK
  21. ZYRTEC [Concomitant]
     Dosage: UNK
  22. BENADRYL ^ACHE^ [Concomitant]
     Dosage: UNK
  23. CEPHALEXIN [Concomitant]
     Dosage: UNK
  24. AVELOX [Concomitant]
     Dosage: UNK
  25. MEDROL [Concomitant]
     Dosage: UNK
  26. TERAZOL 3 [Concomitant]
     Dosage: UNK
  27. STRESSTABS [Concomitant]
     Dosage: UNK
  28. DERMA-SMOOTHE/FS [Concomitant]
  29. FLUCONAZOLE [Concomitant]
     Dosage: UNK
  30. AMPICILLIN [Concomitant]
     Dosage: UNK
  31. ROCEPHIN [Concomitant]
     Dosage: UNK
  32. TYLENOL-500 [Concomitant]
     Dosage: UNK
  33. XENICAL [Concomitant]
     Dosage: UNK
  34. OXSORALEN-ULTRA [Concomitant]
     Dosage: UNK
  35. TUSSIONEX [Concomitant]
     Dosage: UNK
  36. KETEK [Concomitant]
     Dosage: 400 MG
  37. TRIAM ^LICHTENSTEIN^ [Concomitant]
  38. TEA TREE OIL [Concomitant]
     Dosage: UNK
  39. CALAMINE [Concomitant]
     Dosage: UNK
  40. KENALOG [Concomitant]
     Dosage: UNK
  41. PRILOSEC [Concomitant]
     Dosage: UNK
  42. LIPITOR [Concomitant]
  43. TARGRETIN [Concomitant]
  44. SUCRALFATE [Concomitant]
     Dosage: UNK G, UNK
  45. METRONIDAZOLE [Concomitant]
  46. SUPRAX ^KLINGE^ [Concomitant]
  47. AZITHROMYCIN [Concomitant]
  48. LEVOTHYROXINE [Concomitant]
  49. FAMOTIDINE [Concomitant]
  50. GENTAMICIN [Concomitant]
  51. HYDROCODONE BITARTRATE AND ACETAMINOPHEN [Concomitant]
  52. ALBUTEROL [Concomitant]
  53. ZOVIRAX [Concomitant]
  54. MAXIPHEN DM [Concomitant]
  55. ORAL CONTRACEPTIVE NOS [Concomitant]
  56. FLONASE [Concomitant]
  57. ZYBAN [Concomitant]
  58. NEXIUM [Concomitant]
  59. INTERFERON ALFA-2A [Concomitant]
  60. CARAFATE [Concomitant]

REACTIONS (73)
  - ABDOMINAL PAIN [None]
  - ACNE [None]
  - ACUTE SINUSITIS [None]
  - ANAEMIA [None]
  - ANOGENITAL WARTS [None]
  - ANORECTAL DISCOMFORT [None]
  - ARTHRALGIA [None]
  - ASTHENIA [None]
  - BACK PAIN [None]
  - BLOOD ALKALINE PHOSPHATASE INCREASED [None]
  - BLOOD CHOLESTEROL INCREASED [None]
  - BLOOD GLUCOSE INCREASED [None]
  - BLOOD PRESSURE INCREASED [None]
  - BLOOD TRIGLYCERIDES INCREASED [None]
  - BLOOD URINE PRESENT [None]
  - BRONCHITIS [None]
  - CERUMEN IMPACTION [None]
  - CONSTIPATION [None]
  - CONTUSION [None]
  - DEPRESSION [None]
  - DERMATITIS ALLERGIC [None]
  - DYSFUNCTIONAL UTERINE BLEEDING [None]
  - DYSLIPIDAEMIA [None]
  - DYSPHAGIA [None]
  - EAR PAIN [None]
  - ECZEMA [None]
  - ECZEMA INFECTED [None]
  - FALL [None]
  - FATIGUE [None]
  - FIBULA FRACTURE [None]
  - FOOD ALLERGY [None]
  - FURUNCLE [None]
  - GAIT DISTURBANCE [None]
  - GASTROOESOPHAGEAL REFLUX DISEASE [None]
  - GENITAL HERPES [None]
  - HAEMORRHOIDS [None]
  - HERNIA [None]
  - HERPES SIMPLEX [None]
  - INSOMNIA [None]
  - IRON DEFICIENCY [None]
  - JOINT RANGE OF MOTION DECREASED [None]
  - JOINT SPRAIN [None]
  - JOINT SWELLING [None]
  - LYMPHADENOPATHY [None]
  - LYMPHOCYTIC INFILTRATION [None]
  - MAMMOGRAM ABNORMAL [None]
  - MULTIPLE ALLERGIES [None]
  - MUSCULAR WEAKNESS [None]
  - MYALGIA [None]
  - MYCOSIS FUNGOIDES [None]
  - NON-HODGKIN'S LYMPHOMA [None]
  - OBESITY [None]
  - OCCULT BLOOD [None]
  - OSTEOPENIA [None]
  - PAIN IN EXTREMITY [None]
  - PAPILLOMA VIRAL INFECTION [None]
  - PHOTOPHERESIS [None]
  - PROCTALGIA [None]
  - PRURITUS [None]
  - PRURITUS GENERALISED [None]
  - RASH ERYTHEMATOUS [None]
  - RASH MACULO-PAPULAR [None]
  - RASH PRURITIC [None]
  - RHINITIS ALLERGIC [None]
  - RHINORRHOEA [None]
  - SINUSITIS [None]
  - SKIN CANCER [None]
  - SKIN LESION [None]
  - SKIN ULCER [None]
  - SOCIAL AVOIDANT BEHAVIOUR [None]
  - URINARY TRACT INFECTION [None]
  - UTERINE LEIOMYOMA [None]
  - WEIGHT INCREASED [None]
